FAERS Safety Report 17771238 (Version 4)
Quarter: 2020Q3

REPORT INFORMATION
  Report Type: Spontaneous
  Country: US (occurrence: US)
  Receive Date: 20200512
  Receipt Date: 20200829
  Transmission Date: 20201102
  Serious: Yes (Hospitalization, Other)
  Sender: FDA-Public Use
  Company Number: US-ABBVIE-20K-163-3392504-00

PATIENT
  Age: 56 Year
  Sex: Female
  Weight: 113.5 kg

DRUGS (8)
  1. DEPAKOTE ER [Suspect]
     Active Substance: DIVALPROEX SODIUM
     Route: 048
     Dates: start: 202003, end: 2020
  2. LEVOTHYROXINE. [Concomitant]
     Active Substance: LEVOTHYROXINE
     Indication: PRODUCT USED FOR UNKNOWN INDICATION
  3. DEPAKOTE ER [Suspect]
     Active Substance: DIVALPROEX SODIUM
     Indication: EPILEPSY
     Dosage: 1500MG IN THE MORNING?2000MG AT NIGHT
     Route: 048
     Dates: start: 1975
  4. MYSOLINE [Suspect]
     Active Substance: PRIMIDONE
     Indication: SEIZURE
     Route: 065
  5. DEPAKOTE ER [Suspect]
     Active Substance: DIVALPROEX SODIUM
     Route: 048
  6. VALACYCLOVIR HCL [Concomitant]
     Active Substance: VALACYCLOVIR HYDROCHLORIDE
     Indication: PRODUCT USED FOR UNKNOWN INDICATION
  7. DEPAKOTE ER [Suspect]
     Active Substance: DIVALPROEX SODIUM
     Route: 048
     Dates: start: 202003
  8. ZYPREXA [Suspect]
     Active Substance: OLANZAPINE
     Indication: BIPOLAR DISORDER
     Route: 065

REACTIONS (42)
  - Seizure [Not Recovered/Not Resolved]
  - Psychotic disorder [Recovered/Resolved]
  - Blood cholesterol increased [Not Recovered/Not Resolved]
  - Gastrooesophageal reflux disease [Unknown]
  - Organic brain syndrome [Not Recovered/Not Resolved]
  - Pulmonary hypertension [Not Recovered/Not Resolved]
  - Respiratory failure [Recovered/Resolved]
  - Bipolar I disorder [Not Recovered/Not Resolved]
  - Psychotic disorder [Not Recovered/Not Resolved]
  - Chronic obstructive pulmonary disease [Not Recovered/Not Resolved]
  - Hypertension [Not Recovered/Not Resolved]
  - Malignant melanoma [Recovered/Resolved]
  - Chronic obstructive pulmonary disease [Recovered/Resolved]
  - Behaviour disorder [Not Recovered/Not Resolved]
  - Hepatic steatosis [Unknown]
  - Psychotic disorder [Recovered/Resolved]
  - Aggression [Recovered/Resolved]
  - Intervertebral disc protrusion [Not Recovered/Not Resolved]
  - Pain [Not Recovered/Not Resolved]
  - Cardiac failure congestive [Not Recovered/Not Resolved]
  - Pulmonary embolism [Recovered/Resolved]
  - Aggression [Recovered/Resolved]
  - Anger [Not Recovered/Not Resolved]
  - Agitation [Unknown]
  - Adverse drug reaction [Recovered/Resolved]
  - Mania [Recovered/Resolved]
  - Diabetes mellitus [Not Recovered/Not Resolved]
  - Liver disorder [Unknown]
  - Pneumonia [Recovered/Resolved]
  - Increased appetite [Not Recovered/Not Resolved]
  - Cholecystectomy [Recovered/Resolved]
  - Crying [Not Recovered/Not Resolved]
  - Mood swings [Unknown]
  - Pulmonary embolism [Recovered/Resolved]
  - Unresponsive to stimuli [Recovered/Resolved]
  - Seizure [Recovered/Resolved]
  - Mania [Not Recovered/Not Resolved]
  - Mania [Recovered/Resolved]
  - Bipolar disorder [Recovered/Resolved]
  - Paranoia [Recovered/Resolved]
  - Hypomania [Recovered/Resolved]
  - Ammonia increased [Unknown]

NARRATIVE: CASE EVENT DATE: 1980
